FAERS Safety Report 22231003 (Version 1)
Quarter: 2023Q2

REPORT INFORMATION
  Report Type: Spontaneous
  Country: US (occurrence: None)
  Receive Date: 20230420
  Receipt Date: 20230420
  Transmission Date: 20230721
  Serious: No
  Sender: FDA-Public Use
  Company Number: US-ROCHE-3028360

PATIENT
  Age: 44 Year
  Sex: Female
  Weight: 72.5 kg

DRUGS (1)
  1. KADCYLA [Suspect]
     Active Substance: ADO-TRASTUZUMAB EMTANSINE
     Indication: Breast cancer
     Dosage: ONGOING:YES
     Route: 065
     Dates: start: 20211201

REACTIONS (3)
  - Gingival bleeding [Not Recovered/Not Resolved]
  - Platelet count decreased [Recovered/Resolved]
  - Petechiae [Unknown]

NARRATIVE: CASE EVENT DATE: 20220117
